FAERS Safety Report 4492015-2 (Version None)
Quarter: 2004Q4

REPORT INFORMATION
  Report Type: 
  Country: None (occurrence: None)
  Receive Date: 20041029
  Receipt Date: 20041015
  Transmission Date: 20050328
  Serious: Yes (Life-Threatening, Hospitalization)
  Sender: FDA-Public Use
  Company Number: 6011181

PATIENT
  Age: 62 Year
  Sex: Male

DRUGS (2)
  1. CETUXIMAB                (CETUXIMAB) [Suspect]
     Indication: COLORECTAL CANCER
     Dosage: 250 MG/M2 (1 IN 1 WK) INTRAVENOUS DRIP
     Route: 041
     Dates: start: 20040920
  2. IRINOTECAN                   (IRINOTECAN) [Suspect]
     Indication: COLORECTAL CANCER
     Dosage: 125 MG/M2 (1 IN 1 WK) INTRAVENOUS
     Route: 042
     Dates: start: 20040920

REACTIONS (6)
  - C-REACTIVE PROTEIN INCREASED [None]
  - DEHYDRATION [None]
  - DIARRHOEA [None]
  - GASTRITIS [None]
  - MUCOSAL INFLAMMATION [None]
  - REFUSAL OF TREATMENT BY PATIENT [None]
